FAERS Safety Report 8335924-6 (Version None)
Quarter: 2012Q2

REPORT INFORMATION
  Report Type: 
  Country: None (occurrence: None)
  Receive Date: 20120504
  Receipt Date: 20120501
  Transmission Date: 20120825
  Serious: No
  Sender: FDA-Public Use
  Company Number: US-PFIZER INC-2012107770

PATIENT
  Sex: Female
  Weight: 88.4 kg

DRUGS (5)
  1. SPIRIVA [Concomitant]
     Indication: DYSPNOEA
  2. PRAVASTATIN [Concomitant]
     Indication: BLOOD CHOLESTEROL ABNORMAL
     Dosage: 20 MG, (EVERY OTHER DAY)
  3. PRADAXA [Concomitant]
     Indication: ANTICOAGULANT THERAPY
     Dosage: 150 MG, 2X/DAY
  4. SPIRIVA [Concomitant]
     Indication: CHRONIC OBSTRUCTIVE PULMONARY DISEASE
     Dosage: 18 UG, DAILY
  5. TIKOSYN [Suspect]
     Indication: ATRIAL FIBRILLATION
     Dosage: 0.25 MG, 2X/DAY
     Dates: start: 20111001

REACTIONS (1)
  - ALOPECIA [None]
